FAERS Safety Report 24213910 (Version 1)
Quarter: 2024Q3

REPORT INFORMATION
  Report Type: Spontaneous
  Country: NL (occurrence: NL)
  Receive Date: 20240815
  Receipt Date: 20240815
  Transmission Date: 20241017
  Serious: Yes (Other)
  Sender: TEVA
  Company Number: None

PATIENT
  Age: 44 Year
  Sex: Male
  Weight: 86 kg

DRUGS (5)
  1. MIRTAZAPINE [Suspect]
     Active Substance: MIRTAZAPINE
     Indication: Insomnia
     Dosage: MIRTAZAPINE / BRAND NAME NOT SPECIFIED
     Route: 065
     Dates: start: 20240227
  2. CLOPIDOGREL [Suspect]
     Active Substance: CLOPIDOGREL BISULFATE
     Indication: Cerebrovascular accident
     Dosage: 1 TIME PER DAY; CLOPIDOGREL / BRAND NAME NOT SPECIFIED
     Route: 065
     Dates: start: 20240501
  3. METHADONE [Suspect]
     Active Substance: METHADONE HYDROCHLORIDE
     Indication: Withdrawal syndrome
     Dosage: 40 MG ONCE A DAY BUT HAS NOW INCREASED TO 70 MG;METHADONE / BRAND NAME NOT SPECIFIED
     Route: 065
     Dates: start: 20240322
  4. ZOLPIDEM [Suspect]
     Active Substance: ZOLPIDEM TARTRATE
     Indication: Insomnia
     Dosage: 1 TIME PER DAY; ZOLPIDEM / BRAND NAME NOT SPECIFIED
     Route: 065
     Dates: start: 20240227
  5. DIAZEPAM [Suspect]
     Active Substance: DIAZEPAM
     Indication: Product used for unknown indication
     Dosage: 3 TIMES A DAY AT 12 NOON 2.5 4 PM 5 MG 8 PM 12.5; DIAZEPAM / BRAND NAME NOT SPECIFIED
     Route: 065
     Dates: start: 20240401

REACTIONS (11)
  - Suicidal ideation [Not Recovered/Not Resolved]
  - Depressed mood [Not Recovered/Not Resolved]
  - Dyspnoea [Not Recovered/Not Resolved]
  - Somnambulism [Not Recovered/Not Resolved]
  - Restlessness [Not Recovered/Not Resolved]
  - Somnolence [Not Recovered/Not Resolved]
  - Crying [Not Recovered/Not Resolved]
  - Confusional state [Not Recovered/Not Resolved]
  - Anxiety [Not Recovered/Not Resolved]
  - Anger [Not Recovered/Not Resolved]
  - Palpitations [Not Recovered/Not Resolved]
